FAERS Safety Report 7164823-0 (Version None)
Quarter: 2010Q4

REPORT INFORMATION
  Report Type: 
  Country: None (occurrence: None)
  Receive Date: 20101215
  Receipt Date: 20101202
  Transmission Date: 20110411
  Serious: Yes (Other)
  Sender: FDA-Public Use
  Company Number: PL-MERCK-1012POL00006

PATIENT
  Age: 99 Year
  Sex: Female
  Weight: 55 kg

DRUGS (15)
  1. SINEMET [Suspect]
     Indication: PARKINSON'S DISEASE
     Route: 048
     Dates: start: 20100531, end: 20100619
  2. SINEMET [Suspect]
     Route: 048
     Dates: start: 20100620, end: 20100820
  3. SINEMET [Suspect]
     Route: 048
     Dates: start: 20100821, end: 20100903
  4. SINEMET [Suspect]
     Route: 048
     Dates: start: 20100904, end: 20100905
  5. SINEMET [Suspect]
     Route: 048
     Dates: start: 20100906, end: 20100907
  6. RIVASTIGMINE [Concomitant]
     Route: 065
  7. FUROSEMIDE [Concomitant]
     Route: 065
  8. RAMIPRIL [Concomitant]
     Route: 065
  9. BISOPROLOL FUMARATE [Concomitant]
     Route: 065
  10. ISOSORBIDE MONONITRATE [Concomitant]
     Route: 065
  11. UBIDECARENONE [Concomitant]
     Route: 065
  12. VITAMINS (UNSPECIFIED) [Concomitant]
     Route: 065
  13. OMEGA-3 MARINE TRIGLYCERIDES [Concomitant]
     Route: 065
  14. PHOSPHATIDYL SERINE [Concomitant]
     Route: 065
  15. POTASSIUM CHLORIDE [Concomitant]
     Route: 065

REACTIONS (8)
  - DRUG INEFFECTIVE [None]
  - ERYTHEMA [None]
  - HYPERSENSITIVITY [None]
  - NEUROLOGICAL EYELID DISORDER [None]
  - OESOPHAGEAL HYPOMOTILITY [None]
  - PARALYSIS [None]
  - SOMNOLENCE [None]
  - TONGUE PARALYSIS [None]
